FAERS Safety Report 6579187-0 (Version None)
Quarter: 2010Q1

REPORT INFORMATION
  Report Type: 
  Country: None (occurrence: None)
  Receive Date: 20100125
  Receipt Date: 20100119
  Transmission Date: 20100710
  Serious: Yes (Other)
  Sender: FDA-Public Use
  Company Number: 2009SP035463

PATIENT
  Age: 80 Year
  Sex: Female
  Weight: 57 kg

DRUGS (5)
  1. DEXAMETHASONE SODIUM PHOSPHATE [Suspect]
     Indication: OTITIS MEDIA
     Dosage: BID; IAUR
     Route: 001
     Dates: start: 20090925, end: 20090926
  2. MEIACT MS [Concomitant]
  3. OFLOXACIN [Concomitant]
  4. MUCODYNE [Concomitant]
  5. METHYCOBAL [Concomitant]

REACTIONS (4)
  - CONDITION AGGRAVATED [None]
  - EAR PAIN [None]
  - FACIAL PALSY [None]
  - HEMIPLEGIA [None]
